FAERS Safety Report 14001105 (Version 1)
Quarter: 2017Q3

REPORT INFORMATION
  Report Type: Spontaneous
  Country: GB (occurrence: GB)
  Receive Date: 20170922
  Receipt Date: 20170922
  Transmission Date: 20171128
  Serious: Yes (Hospitalization, Other)
  Sender: FDA-Public Use
  Company Number: GB-ABBVIE-17P-167-2109434-00

PATIENT
  Age: 3 Year
  Sex: Female
  Weight: 15 kg

DRUGS (3)
  1. AMOXYCILLIN [Suspect]
     Active Substance: AMOXICILLIN
     Indication: EAR INFECTION BACTERIAL
     Dosage: THERAPY DATES: 25-AUG-2017-27 AUG 2017
     Route: 048
  2. IBUPROFEN. [Suspect]
     Active Substance: IBUPROFEN
     Indication: PYREXIA
     Dosage: UNK
     Route: 065
     Dates: start: 201608
  3. CLARITHROMYCIN. [Suspect]
     Active Substance: CLARITHROMYCIN
     Indication: EAR INFECTION
     Dosage: 125 MG, BID; THERAPY DATES 30 AUG 2017-4 SEP 2017
     Route: 048

REACTIONS (4)
  - Stevens-Johnson syndrome [Not Recovered/Not Resolved]
  - Staphylococcal scalded skin syndrome [Not Recovered/Not Resolved]
  - Toxic epidermal necrolysis [Not Recovered/Not Resolved]
  - Varicella [Unknown]

NARRATIVE: CASE EVENT DATE: 20170827
